FAERS Safety Report 15688763 (Version 2)
Quarter: 2019Q1

REPORT INFORMATION
  Report Type: Spontaneous
  Country: US (occurrence: US)
  Receive Date: 20181205
  Receipt Date: 20190116
  Transmission Date: 20190417
  Serious: No
  Sender: FDA-Public Use
  Company Number: US-AMGEN-USASP2018170970

PATIENT
  Age: 66 Year
  Sex: Female

DRUGS (5)
  1. CALCIUM [Concomitant]
     Active Substance: CALCIUM
     Dosage: 600 MG, UNK
     Route: 048
     Dates: start: 20170315
  2. FISH OIL [Concomitant]
     Active Substance: FISH OIL
     Dosage: 1000 MG, UNK
     Route: 048
     Dates: start: 20170315
  3. PROLIA [Suspect]
     Active Substance: DENOSUMAB
     Indication: OSTEOPOROSIS POSTMENOPAUSAL
     Dosage: 60 MG/ML, Q6MO
     Route: 058
     Dates: start: 20140228
  4. RED YEAST RICE [Concomitant]
     Active Substance: DIETARY SUPPLEMENT
     Dosage: 600 MG, UNK
     Route: 048
     Dates: start: 20170315
  5. VITAMIN C [Concomitant]
     Active Substance: ASCORBIC ACID
     Dosage: 500 MG, QD
     Route: 048
     Dates: start: 20140228

REACTIONS (7)
  - Henoch-Schonlein purpura [Recovering/Resolving]
  - Rhinitis allergic [Unknown]
  - Dermatitis contact [Unknown]
  - Carpal tunnel syndrome [Unknown]
  - Breast mass [Unknown]
  - Neck pain [Unknown]
  - Dyslipidaemia [Unknown]

NARRATIVE: CASE EVENT DATE: 201811
